FAERS Safety Report 21058204 (Version 3)
Quarter: 2022Q3

REPORT INFORMATION
  Report Type: Report from Study
  Country: MX (occurrence: MX)
  Receive Date: 20220708
  Receipt Date: 20220722
  Transmission Date: 20221027
  Serious: Yes (Congenital Anomaly, Other)
  Sender: FDA-Public Use
  Company Number: MX-NOVARTISPH-NVSC2022MX155302

PATIENT
  Age: 73 Year
  Sex: Female
  Weight: 65 kg

DRUGS (2)
  1. EXFORGE HCT [Suspect]
     Active Substance: AMLODIPINE BESYLATE\HYDROCHLOROTHIAZIDE\VALSARTAN
     Indication: Hypertension
     Dosage: 1 DOSAGE FORM, QD
     Route: 048
     Dates: start: 202107
  2. LEVOTHYROXINE [Concomitant]
     Active Substance: LEVOTHYROXINE
     Indication: Thyroid disorder
     Dosage: 100 MCG/ML, QD (1/2 100MCG)
     Route: 048
     Dates: start: 2020

REACTIONS (10)
  - Heart disease congenital [Recovering/Resolving]
  - Kidney infection [Recovering/Resolving]
  - Dysuria [Unknown]
  - Arrhythmia [Recovered/Resolved]
  - Respiration abnormal [Recovering/Resolving]
  - Fear [Unknown]
  - Pharyngitis [Recovering/Resolving]
  - Vertigo [Recovered/Resolved]
  - Pyrexia [Unknown]
  - Hyperhidrosis [Unknown]

NARRATIVE: CASE EVENT DATE: 20220717
